FAERS Safety Report 5249844-7 (Version None)
Quarter: 2007Q1

REPORT INFORMATION
  Report Type: 
  Country: None (occurrence: None)
  Receive Date: 20070223
  Receipt Date: 20070215
  Transmission Date: 20070707
  Serious: Yes (Other)
  Sender: FDA-Public Use
  Company Number: 2007BL000492

PATIENT
  Age: 71 Year
  Weight: 65 kg

DRUGS (3)
  1. PREDNISOLONE SODIUM PHOSPHATE [Suspect]
     Indication: POLYMYALGIA RHEUMATICA
     Dosage: 15 MILLIGRAMS; UNKNOWN; ORAL
     Route: 048
     Dates: start: 19940221
  2. DIDRONEL PMO ^PROCTER + GAMBLE^ [Concomitant]
  3. ADCAL-D3 [Concomitant]

REACTIONS (1)
  - KERATOPATHY [None]
